FAERS Safety Report 7606735-1 (Version None)
Quarter: 2011Q3

REPORT INFORMATION
  Report Type: 
  Country: None (occurrence: None)
  Receive Date: 20110713
  Receipt Date: 20110711
  Transmission Date: 20111222
  Serious: Yes (Death)
  Sender: FDA-Public Use
  Company Number: IT-MERCK-1107ITA00023

PATIENT
  Age: 65 Year
  Sex: Female

DRUGS (3)
  1. VYTORIN [Suspect]
     Indication: HYPERCHOLESTEROLAEMIA
     Route: 048
     Dates: start: 20090320
  2. RAMIPRIL [Concomitant]
     Route: 065
  3. MESALAMINE [Concomitant]
     Route: 048

REACTIONS (1)
  - DEATH [None]
